FAERS Safety Report 7028723-9 (Version None)
Quarter: 2010Q4

REPORT INFORMATION
  Report Type: 
  Country: None (occurrence: None)
  Receive Date: 20101004
  Receipt Date: 20101004
  Transmission Date: 20110411
  Serious: Yes (Life-Threatening, Hospitalization)
  Sender: FDA-Public Use
  Company Number: None

PATIENT
  Age: 68 Year
  Sex: Female
  Weight: 83.9154 kg

DRUGS (1)
  1. FENTANYL [Suspect]
     Indication: COLONOSCOPY
     Dosage: UNKNOWN ST. JOHNS CLINIC TEST AMOUNT? INTRACAVERNOUS
     Route: 017
     Dates: start: 20100916, end: 20100916

REACTIONS (13)
  - BLOOD PRESSURE DECREASED [None]
  - DIARRHOEA [None]
  - FALL [None]
  - INCOHERENT [None]
  - INFLUENZA [None]
  - LIVER FUNCTION TEST ABNORMAL [None]
  - NAUSEA [None]
  - PANCREATIC DISORDER [None]
  - PLATELET COUNT DECREASED [None]
  - RENAL DISORDER [None]
  - THROMBOSIS [None]
  - VOMITING [None]
  - WHITE BLOOD CELL COUNT DECREASED [None]
